FAERS Safety Report 4383687-1 (Version None)
Quarter: 2004Q2

REPORT INFORMATION
  Report Type: 
  Country: None (occurrence: None)
  Receive Date: 20040623
  Receipt Date: 20040616
  Transmission Date: 20050107
  Serious: Yes (Other)
  Sender: FDA-Public Use
  Company Number: US-BRISTOL-MYERS SQUIBB COMPANY-12617403

PATIENT
  Age: 47 Year
  Sex: Female

DRUGS (9)
  1. CISPLATIN [Suspect]
     Indication: LUNG NEOPLASM MALIGNANT
     Dates: start: 20040501, end: 20040501
  2. ETOPOSIDE [Interacting]
     Indication: LUNG NEOPLASM MALIGNANT
     Dates: start: 20040501, end: 20040501
  3. CLOZAPINE [Interacting]
     Indication: SCHIZOAFFECTIVE DISORDER
     Dosage: 700 MG AT BEDTIME (HS) THEN 600 MG HS
     Route: 048
     Dates: start: 19930101
  4. LORTAB [Concomitant]
     Dosage: 5/500 MG
  5. NIFEREX [Concomitant]
  6. CLONAZEPAM [Concomitant]
  7. VIOXX [Concomitant]
  8. MEGESTROL ACETATE [Concomitant]
  9. DARBEPOETIN ALFA [Concomitant]

REACTIONS (2)
  - ANTIPSYCHOTIC DRUG LEVEL ABOVE THERAPEUTIC [None]
  - DRUG INTERACTION [None]
